FAERS Safety Report 20489662 (Version 1)
Quarter: 2022Q1

REPORT INFORMATION
  Report Type: Spontaneous
  Country: DE (occurrence: None)
  Receive Date: 20220218
  Receipt Date: 20220218
  Transmission Date: 20220423
  Serious: Yes (Other)
  Sender: FDA-Public Use
  Company Number: 2022A071232

PATIENT
  Age: 57 Year
  Sex: Male

DRUGS (1)
  1. OSIMERTINIB [Suspect]
     Active Substance: OSIMERTINIB
     Indication: Lung cancer metastatic
     Route: 048
     Dates: start: 20210223

REACTIONS (4)
  - Hypoxia [Unknown]
  - Thrombocytopenia [Unknown]
  - Acne [Unknown]
  - Off label use [Unknown]
